FAERS Safety Report 24729717 (Version 1)
Quarter: 2024Q4

REPORT INFORMATION
  Report Type: Spontaneous
  Country: HU (occurrence: HU)
  Receive Date: 20241213
  Receipt Date: 20241213
  Transmission Date: 20250114
  Serious: Yes (Other)
  Sender: ROCHE
  Company Number: HU-ROCHE-10000155398

PATIENT
  Age: 58 Year
  Sex: Female

DRUGS (1)
  1. TECENTRIQ [Suspect]
     Active Substance: ATEZOLIZUMAB
     Indication: Non-small cell lung cancer
     Route: 042

REACTIONS (1)
  - Anaphylactic reaction [Unknown]

NARRATIVE: CASE EVENT DATE: 20241210
